FAERS Safety Report 6586188-5 (Version None)
Quarter: 2010Q1

REPORT INFORMATION
  Report Type: 
  Country: None (occurrence: None)
  Receive Date: 20100217
  Receipt Date: 20090108
  Transmission Date: 20100710
  Serious: No
  Sender: FDA-Public Use
  Company Number: US-ALLERGAN-0900159US

PATIENT
  Age: 46 Year
  Sex: Male

DRUGS (2)
  1. BOTOX COSMETIC [Suspect]
     Indication: SKIN WRINKLING
     Dosage: UNK, SINGLE
     Route: 030
     Dates: start: 20090102, end: 20090102
  2. ATRIPLA [Concomitant]

REACTIONS (3)
  - HEADACHE [None]
  - INFLUENZA [None]
  - RESPIRATORY TRACT CONGESTION [None]
